FAERS Safety Report 10582557 (Version 3)
Quarter: 2015Q1

REPORT INFORMATION
  Report Type: Spontaneous
  Country: IT (occurrence: IT)
  Receive Date: 20141113
  Receipt Date: 20150113
  Transmission Date: 20150720
  Serious: Yes (Other)
  Sender: FDA-Public Use
  Company Number: IT-TEVA-521063ISR

PATIENT
  Sex: Male

DRUGS (1)
  1. CARBOLITHIUM [Suspect]
     Active Substance: LITHIUM CARBONATE

REACTIONS (8)
  - Gastrointestinal disorder [Recovered/Resolved]
  - Tremor [Recovered/Resolved]
  - Abdominal pain upper [Recovered/Resolved]
  - Seizure [Recovered/Resolved]
  - Drug ineffective [Recovered/Resolved]
  - Muscle disorder [Recovering/Resolving]
  - Drug dependence [Recovered/Resolved]
  - Intentional product misuse [Recovered/Resolved]
